FAERS Safety Report 10166771 (Version 1)
Quarter: 2014Q2

REPORT INFORMATION
  Report Type: Spontaneous
  Country: US (occurrence: None)
  Receive Date: 20140509
  Receipt Date: 20140509
  Transmission Date: 20141212
  Serious: Yes (Hospitalization)
  Sender: FDA-Public Use
  Company Number: None

PATIENT
  Age: 63 Year
  Sex: Male
  Weight: 95 kg

DRUGS (1)
  1. CYCLOBENZAPRINE [Suspect]
     Indication: PAIN
     Route: 048
     Dates: start: 20010509

REACTIONS (4)
  - Depressed level of consciousness [None]
  - Unresponsive to stimuli [None]
  - Blood glucose increased [None]
  - Sedation [None]
